FAERS Safety Report 25990183 (Version 2)
Quarter: 2025Q4

REPORT INFORMATION
  Report Type: Spontaneous
  Country: EU (occurrence: EU)
  Receive Date: 20251103
  Receipt Date: 20251112
  Transmission Date: 20260118
  Serious: Yes (Other)
  Sender: DR REDDYS
  Company Number: None

PATIENT
  Age: 72 Year
  Sex: Female

DRUGS (2)
  1. RIVAROXABAN [Suspect]
     Active Substance: RIVAROXABAN
     Indication: Atrial fibrillation
  2. RIVAROXABAN [Suspect]
     Active Substance: RIVAROXABAN
     Dosage: TABLET
     Route: 048
     Dates: start: 20250701, end: 20250706

REACTIONS (3)
  - Urticaria [Recovering/Resolving]
  - Urticaria [Recovering/Resolving]
  - Hypertransaminasaemia [Recovering/Resolving]

NARRATIVE: CASE EVENT DATE: 20161012
